FAERS Safety Report 20848186 (Version 1)
Quarter: 2022Q2

REPORT INFORMATION
  Report Type: Spontaneous
  Country: GB (occurrence: GB)
  Receive Date: 20220519
  Receipt Date: 20220519
  Transmission Date: 20220721
  Serious: Yes (Other)
  Sender: FDA-Public Use
  Company Number: GB-MYLANLABS-2017M1021958

PATIENT
  Age: 24 Year
  Sex: Female

DRUGS (5)
  1. CLOZARIL [Suspect]
     Active Substance: CLOZAPINE
     Indication: Borderline personality disorder
     Dosage: UNK
     Dates: start: 201904
  2. CLOZARIL [Suspect]
     Active Substance: CLOZAPINE
     Indication: Personality disorder
     Dosage: UNK
     Dates: start: 202204
  3. CLOZARIL [Suspect]
     Active Substance: CLOZAPINE
     Dosage: UNK
  4. CLOZARIL [Suspect]
     Active Substance: CLOZAPINE
     Dosage: UNK
     Dates: end: 202203
  5. CLOZARIL [Suspect]
     Active Substance: CLOZAPINE
     Dosage: UNK
     Dates: start: 20220428

REACTIONS (6)
  - Mental impairment [Unknown]
  - Self-injurious ideation [Unknown]
  - Illness [Unknown]
  - Aggression [Unknown]
  - Therapy cessation [Unknown]
  - Off label use [Unknown]
